FAERS Safety Report 4428482-X (Version None)
Quarter: 2004Q3

REPORT INFORMATION
  Report Type: 
  Country: None (occurrence: None)
  Receive Date: 20040816
  Receipt Date: 20040806
  Transmission Date: 20050211
  Serious: Yes (Hospitalization)
  Sender: FDA-Public Use
  Company Number: KII-2004-0012886

PATIENT
  Age: 41 Year
  Sex: Male

DRUGS (6)
  1. OXYCODONE HCL [Suspect]
     Indication: DRUG USE FOR UNKNOWN INDICATION
     Dosage: ORAL
     Route: 048
  2. BENZODIAZEPINE DERIVATIVES () [Suspect]
     Indication: DRUG USE FOR UNKNOWN INDICATION
     Dosage: ORAL
     Route: 048
  3. COCAINE(COCAINE) [Suspect]
     Indication: DRUG USE FOR UNKNOWN INDICATION
  4. BARBITURATES () [Suspect]
     Indication: DRUG USE FOR UNKNOWN INDICATION
  5. GLUCOTROL [Concomitant]
  6. ORAL ANTIDIABETICS [Concomitant]

REACTIONS (4)
  - AGITATION [None]
  - DYSARTHRIA [None]
  - MULTIPLE DRUG OVERDOSE [None]
  - SELF-MEDICATION [None]
